FAERS Safety Report 18809857 (Version 1)
Quarter: 2021Q1

REPORT INFORMATION
  Report Type: Report from Study
  Country: BR (occurrence: BR)
  Receive Date: 20210129
  Receipt Date: 20210129
  Transmission Date: 20210419
  Serious: Yes (Other)
  Sender: FDA-Public Use
  Company Number: BR-JNJFOC-20210144562

PATIENT
  Age: 44 Year
  Sex: Female
  Weight: 82 kg

DRUGS (6)
  1. CORDAREX [Concomitant]
     Active Substance: AMIODARONE
  2. PREDNISONE. [Concomitant]
     Active Substance: PREDNISONE
  3. SIMPONI [Suspect]
     Active Substance: GOLIMUMAB
     Indication: RHEUMATOID ARTHRITIS
     Route: 058
     Dates: start: 20141212, end: 202012
  4. METHOTREXATE. [Concomitant]
     Active Substance: METHOTREXATE
  5. PREGABALINA [Concomitant]
     Active Substance: PREGABALIN
  6. SELOZOK [Concomitant]
     Active Substance: METOPROLOL SUCCINATE

REACTIONS (1)
  - Hysterectomy [Unknown]

NARRATIVE: CASE EVENT DATE: 20210106
